FAERS Safety Report 4487732-4 (Version None)
Quarter: 2004Q4

REPORT INFORMATION
  Report Type: 
  Country: None (occurrence: None)
  Receive Date: 20041027
  Receipt Date: 20041027
  Transmission Date: 20050328
  Serious: Yes (Hospitalization)
  Sender: FDA-Public Use
  Company Number: None

PATIENT
  Age: 92 Year
  Sex: Male
  Weight: 82.5547 kg

DRUGS (5)
  1. PLAVIX [Suspect]
     Indication: AORTIC VALVE REPLACEMENT
     Dosage: 75 MG
     Route: 048
     Dates: start: 20020901
  2. ISOSORBIDE DINITRATE [Concomitant]
  3. TERAZOSIN HCL [Concomitant]
  4. METOCLOPRAMIDE [Concomitant]
  5. RABEPRAZOLE SODIUM [Concomitant]

REACTIONS (2)
  - MELAENA [None]
  - RECTAL HAEMORRHAGE [None]
